FAERS Safety Report 13381432 (Version 1)
Quarter: 2017Q1

REPORT INFORMATION
  Report Type: Spontaneous
  Country: US (occurrence: US)
  Receive Date: 20170329
  Receipt Date: 20170329
  Transmission Date: 20170429
  Serious: No
  Sender: FDA-Public Use
  Company Number: US-GALDERMA-US16005876

PATIENT
  Age: 74 Year
  Sex: Female

DRUGS (2)
  1. LANOXIN [Concomitant]
     Active Substance: DIGOXIN
     Indication: MITRAL VALVE PROLAPSE
     Route: 048
  2. CLOBETASOL PROPIONATE (CLOBETASOL PROPIONATE) SHAMPOO, 0.05% [Suspect]
     Active Substance: CLOBETASOL PROPIONATE
     Indication: PSORIASIS
     Route: 061
     Dates: start: 2016, end: 201606

REACTIONS (2)
  - Intentional product use issue [Recovered/Resolved]
  - Drug ineffective [Not Recovered/Not Resolved]

NARRATIVE: CASE EVENT DATE: 2016
